FAERS Safety Report 6399516-0 (Version None)
Quarter: 2009Q4

REPORT INFORMATION
  Report Type: 
  Country: None (occurrence: None)
  Receive Date: 20091013
  Receipt Date: 20091013
  Transmission Date: 20100525
  Serious: Yes (Disabling, Other)
  Sender: FDA-Public Use
  Company Number: None

PATIENT
  Sex: Female
  Weight: 63.5036 kg

DRUGS (2)
  1. RID MOUSSE [Suspect]
     Indication: LICE INFESTATION
     Dosage: USED PER INSTRUCTIONS/ 6-8 TIMES.
     Dates: start: 20050901, end: 20060101
  2. OVIDE [Suspect]

REACTIONS (2)
  - ALOPECIA [None]
  - DERMATITIS [None]
